FAERS Safety Report 11211840 (Version 1)
Quarter: 2015Q2

REPORT INFORMATION
  Report Type: Spontaneous
  Country: IT (occurrence: IT)
  Receive Date: 20150623
  Receipt Date: 20150623
  Transmission Date: 20150821
  Serious: Yes (Death, Hospitalization)
  Sender: FDA-Public Use
  Company Number: IT-SA-2015SA088502

PATIENT
  Age: 53 Year
  Sex: Female

DRUGS (1)
  1. ENOXAPARIN SODIUM. [Suspect]
     Active Substance: ENOXAPARIN SODIUM
     Indication: THROMBOSIS PROPHYLAXIS
     Route: 065

REACTIONS (7)
  - Pulmonary embolism [Fatal]
  - Thrombosis [Fatal]
  - Myocardial infarction [Fatal]
  - Heparin-induced thrombocytopenia [Fatal]
  - Adrenal haematoma [Fatal]
  - Pain in extremity [Fatal]
  - Oedema [Fatal]
